FAERS Safety Report 4502681-0 (Version None)
Quarter: 2004Q4

REPORT INFORMATION
  Report Type: 
  Country: None (occurrence: None)
  Receive Date: 20041110
  Receipt Date: 20041025
  Transmission Date: 20050328
  Serious: No
  Sender: FDA-Public Use
  Company Number: A01200405401

PATIENT
  Sex: Male

DRUGS (1)
  1. STILNOCT-(ZOLPIDEM TARTRATE) [Suspect]

REACTIONS (5)
  - AMNESIA [None]
  - CONVULSION [None]
  - HALLUCINATION [None]
  - HEAD INJURY [None]
  - SLEEP WALKING [None]
